FAERS Safety Report 14113466 (Version 1)
Quarter: 2017Q4

REPORT INFORMATION
  Report Type: Spontaneous
  Country: US (occurrence: US)
  Receive Date: 20171023
  Receipt Date: 20171023
  Transmission Date: 20180321
  Serious: Yes (Hospitalization)
  Sender: FDA-Public Use
  Company Number: US-TEVA-805316USA

PATIENT
  Age: 71 Year
  Sex: Female
  Weight: 80.5 kg

DRUGS (18)
  1. METFORMIN [Suspect]
     Active Substance: METFORMIN HYDROCHLORIDE
     Indication: DIABETES MELLITUS
     Dosage: 3000 MILLIGRAM DAILY;
     Route: 048
     Dates: end: 20170720
  2. TYLENOL [Concomitant]
     Active Substance: ACETAMINOPHEN
  3. LISINOPRIL. [Concomitant]
     Active Substance: LISINOPRIL
  4. TRAMADOL. [Concomitant]
     Active Substance: TRAMADOL
  5. TAXOL [Concomitant]
     Active Substance: PACLITAXEL
     Dates: start: 20170227, end: 20170424
  6. FLUTICASONE. [Concomitant]
     Active Substance: FLUTICASONE
  7. GLIMEPIRIDE. [Suspect]
     Active Substance: GLIMEPIRIDE
     Indication: DIABETES MELLITUS
     Route: 048
     Dates: start: 20170309, end: 20170720
  8. XANAX [Concomitant]
     Active Substance: ALPRAZOLAM
  9. ALLOPURINOL. [Concomitant]
     Active Substance: ALLOPURINOL
  10. PROAIR HFA [Concomitant]
     Active Substance: ALBUTEROL SULFATE
  11. LEVOTHYROXINE. [Concomitant]
     Active Substance: LEVOTHYROXINE
  12. CLARITIN [Concomitant]
     Active Substance: LORATADINE
  13. LOVASTATIN. [Concomitant]
     Active Substance: LOVASTATIN
  14. AMLODIPINE [Concomitant]
     Active Substance: AMLODIPINE BESYLATE
  15. AVELUMAB [Concomitant]
     Active Substance: AVELUMAB
     Indication: MALIGNANT PERITONEAL NEOPLASM
     Route: 042
     Dates: start: 20170227, end: 20170411
  16. PARAPLATIN [Concomitant]
     Active Substance: CARBOPLATIN
     Dates: start: 20170227, end: 20170411
  17. VITAMIN D3 [Concomitant]
     Active Substance: CHOLECALCIFEROL
  18. PROCHLORPERAZINE. [Concomitant]
     Active Substance: PROCHLORPERAZINE

REACTIONS (1)
  - Hypoglycaemia [Recovered/Resolved]

NARRATIVE: CASE EVENT DATE: 20170721
